FAERS Safety Report 25407050 (Version 1)
Quarter: 2025Q2

REPORT INFORMATION
  Report Type: Spontaneous
  Country: ES (occurrence: ES)
  Receive Date: 20250606
  Receipt Date: 20250606
  Transmission Date: 20250716
  Serious: Yes (Death, Hospitalization, Other)
  Sender: AMGEN
  Company Number: ES-AMGEN-ESPSP2025110115

PATIENT

DRUGS (1)
  1. BLINATUMOMAB [Suspect]
     Active Substance: BLINATUMOMAB
     Indication: B precursor type acute leukaemia
     Route: 065

REACTIONS (7)
  - B precursor type acute leukaemia [Fatal]
  - Cytopenia [Unknown]
  - Hypogammaglobulinaemia [Unknown]
  - Haemophagocytic lymphohistiocytosis [Unknown]
  - Immune effector cell-associated neurotoxicity syndrome [Unknown]
  - Cytokine release syndrome [Unknown]
  - Infection [Unknown]
